FAERS Safety Report 5067452-8 (Version None)
Quarter: 2006Q3

REPORT INFORMATION
  Report Type: 
  Country: None (occurrence: None)
  Receive Date: 20060731
  Receipt Date: 20060724
  Transmission Date: 20061208
  Serious: Yes (Other)
  Sender: FDA-Public Use
  Company Number: 200614048BWH

PATIENT
  Age: 81 Year
  Sex: Female

DRUGS (4)
  1. AVELOX [Suspect]
     Indication: COUGH
     Dates: start: 20060603, end: 20060607
  2. AVELOX [Suspect]
     Indication: INFECTION
     Dates: start: 20060603, end: 20060607
  3. ASPIRIN [Concomitant]
  4. PREMARIN [Concomitant]

REACTIONS (2)
  - MUCOUS STOOLS [None]
  - RECTAL HAEMORRHAGE [None]
